FAERS Safety Report 10645067 (Version 1)
Quarter: 2014Q4

REPORT INFORMATION
  Report Type: Spontaneous
  Country: US (occurrence: None)
  Receive Date: 20141210
  Receipt Date: 20141210
  Transmission Date: 20150529
  Serious: Yes (Disabling)
  Sender: FDA-Public Use
  Company Number: None

PATIENT
  Age: 46 Year
  Sex: Female
  Weight: 86.18 kg

DRUGS (2)
  1. FLORASTOR [Suspect]
     Active Substance: SACCHAROMYCES CEREVISIAE
     Indication: MUSCLE SPASMS
     Dosage: 1 PILL TWICE PER DAY, TWICE DAILY, TAKEN BY MOUTH
     Route: 048
     Dates: start: 20141202, end: 20141206
  2. FLORASTOR [Suspect]
     Active Substance: SACCHAROMYCES CEREVISIAE
     Indication: DIARRHOEA
     Dosage: 1 PILL TWICE PER DAY, TWICE DAILY, TAKEN BY MOUTH
     Route: 048
     Dates: start: 20141202, end: 20141206

REACTIONS (3)
  - Functional gastrointestinal disorder [None]
  - Abnormal faeces [None]
  - Constipation [None]

NARRATIVE: CASE EVENT DATE: 20141206
